FAERS Safety Report 12310639 (Version 1)
Quarter: 2016Q2

REPORT INFORMATION
  Report Type: Spontaneous
  Country: FR (occurrence: FR)
  Receive Date: 20160427
  Receipt Date: 20160427
  Transmission Date: 20160815
  Serious: Yes (Hospitalization)
  Sender: FDA-Public Use
  Company Number: FR-CONCORDIA PHARMACEUTICALS INC.-CO-UX-FR-2016-020

PATIENT
  Age: 73 Year
  Sex: Male

DRUGS (9)
  1. AMOXICILLINE [Suspect]
     Active Substance: AMOXICILLIN
     Indication: ENDOCARDITIS BACTERIAL
     Route: 042
     Dates: start: 20160110, end: 20160310
  2. BISOPROLOL HEMIFUMARATE [Suspect]
     Active Substance: BISOPROLOL FUMARATE
     Indication: HYPERTENSION
     Route: 065
     Dates: end: 20160315
  3. CALCIPARINE [Concomitant]
     Active Substance: HEPARIN CALCIUM
  4. TIENAM [Suspect]
     Active Substance: CILASTATIN SODIUM\IMIPENEM
     Indication: KLEBSIELLA INFECTION
     Route: 042
     Dates: start: 20160208, end: 20160315
  5. CORDARONE [Concomitant]
     Active Substance: AMIODARONE HYDROCHLORIDE
  6. PREVISCAN [Suspect]
     Active Substance: FLUINDIONE
     Indication: PROPHYLAXIS
     Route: 048
     Dates: end: 20160315
  7. EUPANTOL [Suspect]
     Active Substance: PANTOPRAZOLE SODIUM
     Indication: PROPHYLAXIS
     Route: 065
     Dates: end: 20160311
  8. GENTAMICIN. [Suspect]
     Active Substance: GENTAMICIN
     Indication: ENDOCARDITIS
     Route: 065
     Dates: start: 20160110
  9. ALFUZOSIN HYDROCHLORIDE. [Suspect]
     Active Substance: ALFUZOSIN HYDROCHLORIDE
     Indication: URINARY RETENTION
     Route: 065
     Dates: end: 20160315

REACTIONS (2)
  - Neutropenia [Recovered/Resolved]
  - Anaemia [Unknown]

NARRATIVE: CASE EVENT DATE: 20160309
